FAERS Safety Report 13414322 (Version 1)
Quarter: 2017Q2

REPORT INFORMATION
  Report Type: Spontaneous
  Country: US (occurrence: US)
  Receive Date: 20170406
  Receipt Date: 20170406
  Transmission Date: 20170830
  Serious: No
  Sender: FDA-Public Use
  Company Number: US-MIKART, INC.-1065080

PATIENT
  Age: 70 Year
  Sex: Female
  Weight: 56.82 kg

DRUGS (2)
  1. CHLORZOXAZONE. [Suspect]
     Active Substance: CHLORZOXAZONE
     Indication: MYOFASCIAL PAIN SYNDROME
     Route: 048
     Dates: start: 20170307
  2. NEXIUM [Concomitant]
     Active Substance: ESOMEPRAZOLE MAGNESIUM
     Route: 048
     Dates: start: 20020101

REACTIONS (5)
  - Initial insomnia [None]
  - Cognitive disorder [None]
  - Disorientation [Not Recovered/Not Resolved]
  - Bone pain [Not Recovered/Not Resolved]
  - Somnolence [Not Recovered/Not Resolved]

NARRATIVE: CASE EVENT DATE: 20170307
